FAERS Safety Report 7653194-9 (Version None)
Quarter: 2011Q3

REPORT INFORMATION
  Report Type: 
  Country: None (occurrence: None)
  Receive Date: 20110802
  Receipt Date: 20110802
  Transmission Date: 20111222
  Serious: Yes (Life-Threatening, Disabling, Other)
  Sender: FDA-Public Use
  Company Number: None

PATIENT
  Sex: Male
  Weight: 137.8935 kg

DRUGS (2)
  1. METHADONE HCL [Suspect]
     Indication: NECK PAIN
     Dosage: 10 MG TABS 2 TABS AM 1 TAB NOON, 1 TAB PM ORAL
     Route: 048
     Dates: start: 20100101, end: 20100501
  2. METHADONE HCL [Suspect]
     Indication: BACK PAIN
     Dosage: 10 MG TABS 2 TABS AM 1 TAB NOON, 1 TAB PM ORAL
     Route: 048
     Dates: start: 20100101, end: 20100501

REACTIONS (5)
  - DIABETES MELLITUS [None]
  - AGGRESSION [None]
  - MENTAL IMPAIRMENT [None]
  - CHEST PAIN [None]
  - IMPRISONMENT [None]
